FAERS Safety Report 5159384-1 (Version None)
Quarter: 2006Q4

REPORT INFORMATION
  Report Type: 
  Country: None (occurrence: None)
  Receive Date: 20060918
  Receipt Date: 20060801
  Transmission Date: 20070319
  Serious: Yes (Other)
  Sender: FDA-Public Use
  Company Number: US-JNJFOC-20060802206

PATIENT
  Age: 30 Year
  Sex: Female

DRUGS (2)
  1. ORTHO EVRA [Suspect]
     Indication: ENDOMETRIOSIS
     Dosage: TRANSDERMAL
     Route: 062
     Dates: start: 20040813
  2. ORTHO EVRA [Suspect]
     Indication: PELVIC PAIN
     Dosage: TRANSDERMAL
     Route: 062
     Dates: start: 20040813

REACTIONS (1)
  - CEREBROVASCULAR ACCIDENT [None]
